FAERS Safety Report 4675493-5 (Version None)
Quarter: 2005Q2

REPORT INFORMATION
  Report Type: 
  Country: None (occurrence: None)
  Receive Date: 20050527
  Receipt Date: 20050323
  Transmission Date: 20051028
  Serious: No
  Sender: FDA-Public Use
  Company Number: US-BRISTOL-MYERS SQUIBB COMPANY-12909164

PATIENT
  Age: 80 Year
  Sex: Female
  Weight: 32 kg

DRUGS (9)
  1. ABILIFY [Suspect]
     Route: 048
     Dates: start: 20050225
  2. WELLBUTRIN [Concomitant]
  3. ASPIRIN [Concomitant]
  4. VITAMIN B COMPLEX CAP [Concomitant]
  5. ALPHA-LIPOIC ACID [Concomitant]
  6. L-CARNITINE [Concomitant]
  7. SELENIUM TRACE METAL ADDITIVE [Concomitant]
  8. BORAGE OIL [Concomitant]
  9. VITAMIN E [Concomitant]

REACTIONS (1)
  - PAIN [None]
